FAERS Safety Report 8278053-2 (Version None)
Quarter: 2012Q2

REPORT INFORMATION
  Report Type: 
  Country: None (occurrence: None)
  Receive Date: 20120412
  Receipt Date: 20111121
  Transmission Date: 20120825
  Serious: No
  Sender: FDA-Public Use
  Company Number: US-ASTRAZENECA-2009SE22535

PATIENT
  Age: 55 Year
  Sex: Female

DRUGS (3)
  1. PRILOSEC [Suspect]
     Route: 048
  2. PREVACID [Concomitant]
  3. NEXIUM [Suspect]
     Route: 048

REACTIONS (7)
  - DRUG INEFFECTIVE [None]
  - GASTRIC DISORDER [None]
  - DYSPEPSIA [None]
  - ABDOMINAL PAIN UPPER [None]
  - HERNIA [None]
  - INTENTIONAL DRUG MISUSE [None]
  - INSOMNIA [None]
